FAERS Safety Report 21337378 (Version 2)
Quarter: 2023Q1

REPORT INFORMATION
  Report Type: Spontaneous
  Country: US (occurrence: US)
  Receive Date: 20220915
  Receipt Date: 20230127
  Transmission Date: 20230417
  Serious: Yes (Other)
  Sender: FDA-Public Use
  Company Number: US-BEH-2022149515

PATIENT
  Age: 62 Year
  Sex: Male
  Weight: 120.18 kg

DRUGS (6)
  1. HAEGARDA [Suspect]
     Active Substance: HUMAN C1-ESTERASE INHIBITOR
     Dosage: 6000 INTERNATIONAL UNIT
     Route: 058
     Dates: start: 2021
  2. HAEGARDA [Suspect]
     Active Substance: HUMAN C1-ESTERASE INHIBITOR
     Indication: Hereditary angioedema
     Dosage: UNK, BIW
     Route: 058
     Dates: start: 20210311, end: 2022
  3. HAEGARDA [Suspect]
     Active Substance: HUMAN C1-ESTERASE INHIBITOR
     Indication: Prophylaxis
  4. HYDRALAZINE [Concomitant]
     Active Substance: HYDRALAZINE HYDROCHLORIDE
  5. CARVEDILOL [Concomitant]
     Active Substance: CARVEDILOL
  6. VERAPAMIL [Concomitant]
     Active Substance: VERAPAMIL HYDROCHLORIDE

REACTIONS (6)
  - Cardiac failure congestive [Unknown]
  - Intraocular pressure increased [Unknown]
  - Swelling [Unknown]
  - Eye haemorrhage [Recovering/Resolving]
  - No adverse event [Unknown]
  - Therapy cessation [Unknown]

NARRATIVE: CASE EVENT DATE: 20220907
